FAERS Safety Report 9175641 (Version 3)
Quarter: 2013Q1

REPORT INFORMATION
  Report Type: Spontaneous
  Country: FR (occurrence: FR)
  Receive Date: 20130320
  Receipt Date: 20130329
  Transmission Date: 20140127
  Serious: Yes (Hospitalization)
  Sender: FDA-Public Use
  Company Number: FR-VERTEX PHARMACEUTICALS INC.-2013-003873

PATIENT
  Age: 57 Year
  Sex: Male

DRUGS (8)
  1. INCIVO [Suspect]
     Indication: HEPATITIS C
     Dosage: 1125 MG, BID
     Route: 048
     Dates: start: 20121211
  2. PEGINTERFERON ALFA-2A [Suspect]
     Indication: HEPATITIS C
     Dosage: DOSAGE FORM: UNSPECIFIED
     Route: 058
     Dates: start: 20121211
  3. RIBAVIRIN [Suspect]
     Indication: HEPATITIS C
     Dosage: DOSAGE FORM: TABLET
     Route: 048
     Dates: start: 20121211
  4. METHADONE HYDROCHLORIDE [Concomitant]
     Dosage: DOSAGE FORM: UNSPECIFIED
     Route: 048
  5. DIAZEPAM [Concomitant]
     Indication: ANXIETY
     Dosage: DOSAGE FORM: UNSPECIFIED
     Route: 048
  6. TIANEPTINE [Concomitant]
     Indication: BIPOLAR DISORDER
     Dosage: UNK UNK, BID
     Route: 048
  7. TRIMIPRAMINE [Concomitant]
     Indication: BIPOLAR DISORDER
     Dosage: DOSAGE FORM: UNSPECIFIED
     Route: 048
  8. NEORECORMON [Concomitant]
     Indication: ANAEMIA
     Dosage: DOSAGE FORM: UNSPECIFIED
     Route: 058

REACTIONS (4)
  - General physical health deterioration [Recovered/Resolved]
  - Respiratory failure [Unknown]
  - Anaemia [Recovered/Resolved]
  - Thermal burn [Unknown]
